FAERS Safety Report 8447892 (Version 8)
Quarter: 2012Q4

REPORT INFORMATION
  Report Type: 
  Country: US (occurrence: US)
  Receive Date: 20120308
  Receipt Date: 20121017
  Transmission Date: 20130627
  Serious: Yes (Hospitalization, Other)
  Sender: FDA-Public Use
  Company Number: US-009507513-1203USA00788

PATIENT

DRUGS (3)
  1. FOSAMAX [Suspect]
     Indication: OSTEOPOROSIS
     Dosage: 70 mg, qw
     Route: 048
     Dates: start: 1999, end: 200807
  2. ALENDRONATE SODIUM [Suspect]
     Indication: OSTEOPOROSIS
     Dosage: 70 mg, UNK
     Route: 048
     Dates: start: 200808, end: 201109
  3. FOSAMAX [Suspect]
     Indication: OSTEOPOROSIS
     Dosage: 70 mg, UNK
     Route: 048
     Dates: start: 20080808, end: 201109

REACTIONS (60)
  - Femur fracture [Recovered/Resolved]
  - Myocardial infarction [Unknown]
  - Open reduction of fracture [Unknown]
  - Syncope [Unknown]
  - Chronic lymphocytic leukaemia [Unknown]
  - Renal failure [Unknown]
  - Gallbladder disorder [Unknown]
  - Cardiac disorder [Unknown]
  - Deep vein thrombosis [Unknown]
  - Mass [Unknown]
  - Cerebrovascular accident [Unknown]
  - Fall [Unknown]
  - Low turnover osteopathy [Unknown]
  - Anxiety disorder [Not Recovered/Not Resolved]
  - Depression [Not Recovered/Not Resolved]
  - Emotional distress [Unknown]
  - Nerve injury [Unknown]
  - Calcium deficiency [Unknown]
  - Blood cholesterol increased [Not Recovered/Not Resolved]
  - Thyroid disorder [Unknown]
  - Sinusitis [Unknown]
  - Cardiac failure congestive [Not Recovered/Not Resolved]
  - Obesity [Unknown]
  - Arthritis [Not Recovered/Not Resolved]
  - Ear discomfort [Unknown]
  - Dysphonia [Unknown]
  - Sinusitis [Unknown]
  - Vocal cord thickening [Unknown]
  - Paranasal cyst [Unknown]
  - Laceration [Unknown]
  - Ligament sprain [Unknown]
  - Cough [Not Recovered/Not Resolved]
  - Tendonitis [Not Recovered/Not Resolved]
  - Ventricular dysfunction [Unknown]
  - Mitral valve incompetence [Unknown]
  - Left atrial dilatation [Unknown]
  - Oedema [Unknown]
  - Essential hypertension [Unknown]
  - Lipoma [Unknown]
  - Hyperlipidaemia [Not Recovered/Not Resolved]
  - Acute sinusitis [Not Recovered/Not Resolved]
  - Blood disorder [Unknown]
  - Diabetic neuropathy [Unknown]
  - Chest pain [Unknown]
  - Urinary tract infection [Unknown]
  - Irritable bowel syndrome [Not Recovered/Not Resolved]
  - Diarrhoea infectious [Not Recovered/Not Resolved]
  - Coronary artery disease [Unknown]
  - Gastrooesophageal reflux disease [Not Recovered/Not Resolved]
  - Laryngeal oedema [Unknown]
  - Dizziness [Unknown]
  - Arthralgia [Unknown]
  - Pain in extremity [Unknown]
  - Colon adenoma [Unknown]
  - Colon polypectomy [Unknown]
  - Tendon rupture [Unknown]
  - Nodule [Unknown]
  - Arthroscopy [Unknown]
  - Bursitis [Unknown]
  - Osteoarthritis [Unknown]
